FAERS Safety Report 5730347-8 (Version None)
Quarter: 2008Q2

REPORT INFORMATION
  Report Type: 
  Country: None (occurrence: None)
  Receive Date: 20080502
  Receipt Date: 20080416
  Transmission Date: 20081010
  Serious: Yes (Hospitalization)
  Sender: FDA-Public Use
  Company Number: 026668

PATIENT
  Age: 38 Year
  Sex: Male

DRUGS (1)
  1. ANTABUSE [Suspect]
     Indication: ALCOHOL USE
     Dosage: 200 MG, QD; 200 MG, QOD

REACTIONS (9)
  - ABNORMAL BEHAVIOUR [None]
  - DELUSION [None]
  - ELEVATED MOOD [None]
  - FLIGHT OF IDEAS [None]
  - INSOMNIA [None]
  - IRRITABILITY [None]
  - MANIA [None]
  - POVERTY OF SPEECH [None]
  - PSYCHOMOTOR HYPERACTIVITY [None]
